FAERS Safety Report 9440614 (Version 2)
Quarter: 2013Q3

REPORT INFORMATION
  Report Type: Report from Study
  Country: US (occurrence: US)
  Receive Date: 20130805
  Receipt Date: 20130923
  Transmission Date: 20140515
  Serious: Yes (Hospitalization, Other)
  Sender: FDA-Public Use
  Company Number: US-GILEAD-2013-0080285

PATIENT
  Age: 27 Year
  Sex: Female

DRUGS (1)
  1. AZTREONAM LYSINE [Suspect]
     Indication: PSEUDOMONAS INFECTION
     Dosage: UNK
     Dates: start: 2010

REACTIONS (3)
  - Sinus operation [Unknown]
  - Cystic fibrosis [Unknown]
  - Forced expiratory volume abnormal [Not Recovered/Not Resolved]
